FAERS Safety Report 4974358-9 (Version None)
Quarter: 2006Q2

REPORT INFORMATION
  Report Type: 
  Country: None (occurrence: None)
  Receive Date: 20060417
  Receipt Date: 20060412
  Transmission Date: 20061013
  Serious: Yes (Hospitalization)
  Sender: FDA-Public Use
  Company Number: US-MERCK-0604USA01951

PATIENT
  Age: 78 Year
  Sex: Female

DRUGS (5)
  1. PRINIVIL [Concomitant]
     Route: 048
  2. TOPROL-XL [Concomitant]
     Route: 048
  3. HYDRODIURIL [Concomitant]
     Route: 048
  4. LEVOTHYROXINE SODIUM [Concomitant]
     Route: 065
  5. ZETIA [Suspect]
     Indication: HYPERLIPIDAEMIA
     Route: 048
     Dates: end: 20060301

REACTIONS (2)
  - CHEST PAIN [None]
  - PHARYNGOLARYNGEAL PAIN [None]
